FAERS Safety Report 4538106-9 (Version None)
Quarter: 2004Q4

REPORT INFORMATION
  Report Type: 
  Country: None (occurrence: None)
  Receive Date: 20041221
  Receipt Date: 20041208
  Transmission Date: 20050328
  Serious: Yes (Disabling)
  Sender: FDA-Public Use
  Company Number: 2004081549

PATIENT
  Age: 84 Year
  Sex: Male

DRUGS (5)
  1. NEURONTIN [Suspect]
     Indication: HERPES ZOSTER
     Dosage: 1500 MG (300 MG, 5 IN 1 D), ORAL
     Route: 048
     Dates: start: 20040801, end: 20040901
  2. ALL OTHER THERAPEUTIC PRODUCTS (ALL OTHER THERAPEUTIC PRODUCTS) [Concomitant]
  3. FLECAINIDE ACETATE [Concomitant]
  4. ATORVASTATIN CALCIUM [Concomitant]
  5. CLOPIDOGREL BISULFATE [Concomitant]

REACTIONS (5)
  - BALANCE DISORDER [None]
  - DYSPHASIA [None]
  - GAIT DISTURBANCE [None]
  - HYPOACUSIS [None]
  - MEMORY IMPAIRMENT [None]
